FAERS Safety Report 19834571 (Version 1)
Quarter: 2021Q3

REPORT INFORMATION
  Report Type: Other
  Country: US (occurrence: US)
  Receive Date: 20210915
  Receipt Date: 20210915
  Transmission Date: 20211014
  Serious: Yes (Hospitalization)
  Sender: FDA-Public Use
  Company Number: US-LEADIANT BIOSCIENCES INC-2020STPI000324

PATIENT
  Age: 38 Year
  Sex: Female

DRUGS (13)
  1. ATIVAN [Concomitant]
     Active Substance: LORAZEPAM
  2. COMPAZINE [PROCHLORPERAZINE EDISYLATE] [Concomitant]
     Active Substance: PROCHLORPERAZINE EDISYLATE
  3. ETOPOSIDE. [Concomitant]
     Active Substance: ETOPOSIDE
  4. MATULANE [Suspect]
     Active Substance: PROCARBAZINE HYDROCHLORIDE
     Indication: HODGKIN^S DISEASE
     Dosage: 2 CAPSULES BY MOUTH TWICE DAILY ON DAYS 1?7 OF CHEMOTHERAPY CYCLE
     Route: 048
     Dates: start: 20200515
  5. NEULASTA [Concomitant]
     Active Substance: PEGFILGRASTIM
  6. LEVOTHYROXINE. [Concomitant]
     Active Substance: LEVOTHYROXINE
  7. CHLORHEXIDINE [CHLORHEXIDINE GLUCONATE] [Concomitant]
  8. PREDNISONE. [Concomitant]
     Active Substance: PREDNISONE
  9. ELIQUIS [Concomitant]
     Active Substance: APIXABAN
  10. DOCUSATE [Concomitant]
     Active Substance: DOCUSATE
  11. SENNA [SENNA ALEXANDRINA LEAF] [Concomitant]
  12. ZOFRAN [Concomitant]
     Active Substance: ONDANSETRON HYDROCHLORIDE
  13. CYCLOPHOSPHAMIDE. [Concomitant]
     Active Substance: CYCLOPHOSPHAMIDE

REACTIONS (3)
  - Oropharyngeal pain [Recovered/Resolved]
  - Mucosal inflammation [Recovered/Resolved]
  - Febrile neutropenia [Recovered/Resolved]

NARRATIVE: CASE EVENT DATE: 20200725
